FAERS Safety Report 24892892 (Version 1)
Quarter: 2025Q1

REPORT INFORMATION
  Report Type: Spontaneous
  Country: US (occurrence: US)
  Receive Date: 20250128
  Receipt Date: 20250128
  Transmission Date: 20250408
  Serious: No
  Sender: LUPIN
  Company Number: US-LUPIN PHARMACEUTICALS INC.-2025-00135

PATIENT

DRUGS (1)
  1. LEVOTHYROXINE SODIUM [Suspect]
     Active Substance: LEVOTHYROXINE SODIUM
     Indication: Thyroid disorder
     Route: 065
     Dates: start: 202403

REACTIONS (6)
  - Weight increased [Unknown]
  - Depression [Unknown]
  - Alopecia [Unknown]
  - Sleep disorder [Unknown]
  - Product substitution issue [Unknown]
  - Therapeutic response decreased [Unknown]
